FAERS Safety Report 8473428-0 (Version None)
Quarter: 2012Q2

REPORT INFORMATION
  Report Type: 
  Country: None (occurrence: None)
  Receive Date: 20120628
  Receipt Date: 20120621
  Transmission Date: 20120825
  Serious: Yes (Hospitalization)
  Sender: FDA-Public Use
  Company Number: US-AMGEN-USASP2012038691

PATIENT
  Age: 67 Year
  Sex: Female

DRUGS (1)
  1. ENBREL [Suspect]
     Indication: PSORIASIS
     Dosage: UNK
     Dates: start: 20030101

REACTIONS (6)
  - FEMUR FRACTURE [None]
  - JOINT STIFFNESS [None]
  - ARTHRALGIA [None]
  - BONE DENSITY DECREASED [None]
  - DRUG INEFFECTIVE [None]
  - ARTHRITIS [None]
